FAERS Safety Report 12709406 (Version 1)
Quarter: 2016Q3

REPORT INFORMATION
  Report Type: Spontaneous
  Country: US (occurrence: None)
  Receive Date: 20160901
  Receipt Date: 20160901
  Transmission Date: 20161109
  Serious: Yes (Other)
  Sender: FDA-Public Use
  Company Number: None

PATIENT
  Age: 64 Year
  Sex: Female
  Weight: 58.97 kg

DRUGS (12)
  1. FRESH KOTE EYE DROPS [Concomitant]
  2. RESTASIS [Suspect]
     Active Substance: CYCLOSPORINE
     Indication: DRY EYE
     Dates: start: 20140908, end: 20151201
  3. LOW DOSE ASPIRIN [Concomitant]
     Active Substance: ASPIRIN
  4. LUMIGAN [Concomitant]
     Active Substance: BIMATOPROST
  5. MULTIVITAMIN [Concomitant]
     Active Substance: VITAMINS
  6. MUCINES [Concomitant]
  7. B6 [Concomitant]
     Active Substance: PYRIDOXINE HYDROCHLORIDE
  8. HYDROCORTISONE 2.5% [Concomitant]
  9. PATANOL EYE DROPS [Concomitant]
  10. VITAMIN B12 [Concomitant]
     Active Substance: CYANOCOBALAMIN
  11. CALCIUM [Concomitant]
     Active Substance: CALCIUM
  12. VITAMIN D [Concomitant]
     Active Substance: CHOLECALCIFEROL

REACTIONS (2)
  - Eyelid rash [None]
  - Erythema of eyelid [None]

NARRATIVE: CASE EVENT DATE: 20140908
